FAERS Safety Report 9795486 (Version 1)
Quarter: 2014Q1

REPORT INFORMATION
  Report Type: Spontaneous
  Country: JP (occurrence: JP)
  Receive Date: 20140103
  Receipt Date: 20140103
  Transmission Date: 20141002
  Serious: Yes (Other)
  Sender: FDA-Public Use
  Company Number: JP-ELI_LILLY_AND_COMPANY-JP201312008479

PATIENT
  Sex: Female

DRUGS (1)
  1. HUMALOG 50% LISPRO, 50% NPL [Suspect]
     Indication: DIABETES MELLITUS
     Dosage: 20IU IN THE MORNING, 16IU IN THE EVENING
     Route: 058
     Dates: start: 2009

REACTIONS (2)
  - Upper limb fracture [Unknown]
  - Road traffic accident [Unknown]
